FAERS Safety Report 16571719 (Version 3)
Quarter: 2020Q1

REPORT INFORMATION
  Report Type: Spontaneous
  Country: US (occurrence: US)
  Receive Date: 20190715
  Receipt Date: 20200331
  Transmission Date: 20200409
  Serious: No
  Sender: FDA-Public Use
  Company Number: US-PFIZER INC-2019096133

PATIENT
  Age: 44 Year
  Sex: Female
  Weight: 115.46 kg

DRUGS (3)
  1. BUPROPION. [Suspect]
     Active Substance: BUPROPION
     Dosage: UNK
  2. VENLAFAXINE HCL [Suspect]
     Active Substance: VENLAFAXINE HYDROCHLORIDE
     Indication: DEPRESSION
     Dosage: 150 MG, 1X/DAY
     Route: 048
  3. VENLAFAXINE HCL [Suspect]
     Active Substance: VENLAFAXINE HYDROCHLORIDE
     Indication: SUICIDAL BEHAVIOUR

REACTIONS (3)
  - Drug intolerance [Unknown]
  - Nightmare [Recovered/Resolved]
  - Withdrawal syndrome [Unknown]
